FAERS Safety Report 19157407 (Version 6)
Quarter: 2023Q4

REPORT INFORMATION
  Report Type: Report from Study
  Country: GR (occurrence: GR)
  Receive Date: 20210420
  Receipt Date: 20231013
  Transmission Date: 20240109
  Serious: Yes (Hospitalization)
  Sender: FDA-Public Use
  Company Number: GR-GLAXOSMITHKLINE-GR2021085389

PATIENT

DRUGS (1)
  1. BELANTAMAB MAFODOTIN [Suspect]
     Active Substance: BELANTAMAB MAFODOTIN
     Indication: Plasma cell myeloma
     Dosage: 237.5 MG, CYC (2.50 MG/KG)
     Route: 042
     Dates: start: 20210318, end: 20220712

REACTIONS (1)
  - Pyrexia [Recovered/Resolved]

NARRATIVE: CASE EVENT DATE: 20210414
